FAERS Safety Report 9668846 (Version 2)
Quarter: 2014Q2

REPORT INFORMATION
  Report Type: Report from Study
  Country: DE (occurrence: DE)
  Receive Date: 20131105
  Receipt Date: 20140609
  Transmission Date: 20141212
  Serious: Yes (Hospitalization)
  Sender: FDA-Public Use
  Company Number: DE-ROCHE-1298343

PATIENT
  Sex: Female

DRUGS (5)
  1. BEVACIZUMAB [Suspect]
     Indication: OVARIAN CANCER
     Dosage: LAST DOSE PRIOR TO SAE: 21/AUG/2013
     Route: 042
  2. CARBOPLATIN [Suspect]
     Indication: OVARIAN CANCER
     Dosage: LAST DOSE PRIOR TO SAE: 27/DEC/2012
     Route: 042
  3. PACLITAXEL [Suspect]
     Indication: OVARIAN CANCER
     Dosage: LAST DOSE PRIOR TO SAE: 27/DEC/2012
     Route: 042
  4. AMLODIPIN [Concomitant]
     Indication: HYPERTONIA
     Route: 065
  5. RAMIPRIL [Concomitant]
     Indication: HYPERTONIA
     Dosage: MORNING
     Route: 065
     Dates: start: 20130211

REACTIONS (1)
  - Atrial fibrillation [Recovered/Resolved]
